FAERS Safety Report 17245452 (Version 4)
Quarter: 2020Q1

REPORT INFORMATION
  Report Type: Spontaneous
  Country: CN (occurrence: CN)
  Receive Date: 20200108
  Receipt Date: 20200127
  Transmission Date: 20200409
  Serious: Yes (Other)
  Sender: FDA-Public Use
  Company Number: CN-ASTRAZENECA-2020SE01636

PATIENT
  Age: 77 Year
  Sex: Female
  Weight: 60 kg

DRUGS (1)
  1. IRESSA [Suspect]
     Active Substance: GEFITINIB
     Indication: NON-SMALL CELL LUNG CANCER
     Route: 048
     Dates: start: 201703

REACTIONS (4)
  - Rash [Recovered/Resolved]
  - Malignant neoplasm progression [Unknown]
  - Acquired gene mutation [Unknown]
  - Drug resistance [Unknown]

NARRATIVE: CASE EVENT DATE: 2019
